FAERS Safety Report 12503465 (Version 2)
Quarter: 2016Q3

REPORT INFORMATION
  Report Type: Spontaneous
  Country: US (occurrence: US)
  Receive Date: 20160628
  Receipt Date: 20160727
  Transmission Date: 20161109
  Serious: No
  Sender: FDA-Public Use
  Company Number: US-PFIZER INC-2016295214

PATIENT
  Age: 63 Year
  Sex: Female
  Weight: 108.41 kg

DRUGS (1)
  1. LYRICA [Suspect]
     Active Substance: PREGABALIN
     Indication: SCIATICA
     Dosage: 50 MG, 3X/DAY
     Route: 048

REACTIONS (1)
  - Drug effect incomplete [Unknown]
